FAERS Safety Report 14675330 (Version 8)
Quarter: 2018Q2

REPORT INFORMATION
  Report Type: Spontaneous
  Country: DE (occurrence: DE)
  Receive Date: 20180323
  Receipt Date: 20180614
  Transmission Date: 20180711
  Serious: Yes (Life-Threatening, Hospitalization, Other)
  Sender: FDA-Public Use
  Company Number: DE-PFIZER INC-2018117840

PATIENT
  Age: 56 Year
  Sex: Male

DRUGS (14)
  1. NEUROCIL (LEVOMEPROMAZINE MALEATE) [Suspect]
     Active Substance: LEVOMEPROMAZINE MALEATE
     Dosage: UNK
  2. MYDOCALM (TOLPERISONE HYDROCHLORIDE) [Suspect]
     Active Substance: TOLPERISONE HYDROCHLORIDE
     Dosage: UNK
  3. FLUANXOL [Suspect]
     Active Substance: FLUPENTIXOL
     Dosage: UNK
  4. TRILEPTAL [Suspect]
     Active Substance: OXCARBAZEPINE
     Dosage: UNK
  5. MIRTAZAPINE. [Suspect]
     Active Substance: MIRTAZAPINE
     Dosage: UNK
  6. RISPERDAL [Suspect]
     Active Substance: RISPERIDONE
     Dosage: UNK
  7. TAVOR (LORAZEPAM) [Suspect]
     Active Substance: LORAZEPAM
     Dosage: UNK
  8. ZOLOFT [Suspect]
     Active Substance: SERTRALINE HYDROCHLORIDE
     Dosage: UNK
  9. TRUXAL [Suspect]
     Active Substance: CHLORPROTHIXENE
     Dosage: UNK
  10. SEROQUEL [Suspect]
     Active Substance: QUETIAPINE FUMARATE
     Dosage: UNK
  11. TREVILOR RETARD [Suspect]
     Active Substance: VENLAFAXINE HYDROCHLORIDE
     Dosage: UNK
  12. CYMBALTA [Suspect]
     Active Substance: DULOXETINE HYDROCHLORIDE
     Dosage: UNK
  13. LAMICTAL [Suspect]
     Active Substance: LAMOTRIGINE
     Dosage: UNK
  14. TAXILAN (PERAZINE) [Suspect]
     Active Substance: PERAZINE
     Dosage: UNK

REACTIONS (18)
  - Infection [Unknown]
  - Electrocardiogram QT prolonged [Unknown]
  - Intentional self-injury [Unknown]
  - Wound [Unknown]
  - Urinary tract infection [Unknown]
  - Suicidal ideation [Unknown]
  - Staring [Unknown]
  - Serotonin syndrome [Unknown]
  - Coordination abnormal [Unknown]
  - Hallucination [Unknown]
  - Tooth loss [Unknown]
  - Blood glucose increased [Unknown]
  - Blood pressure decreased [Unknown]
  - Dementia [Unknown]
  - Hypothyroidism [Unknown]
  - Therapy cessation [Unknown]
  - Withdrawal syndrome [Unknown]
  - Contraindicated product administered [Unknown]

NARRATIVE: CASE EVENT DATE: 201707
